FAERS Safety Report 9791357 (Version 3)
Quarter: 2014Q3

REPORT INFORMATION
  Report Type: Report from Study
  Country: CA (occurrence: CA)
  Receive Date: 20140101
  Receipt Date: 20140926
  Transmission Date: 20150326
  Serious: Yes (Other)
  Sender: FDA-Public Use
  Company Number: CA-ROCHE-1325367

PATIENT
  Age: 65 Year
  Sex: Female
  Weight: 68 kg

DRUGS (15)
  1. EFFEXOR [Concomitant]
     Active Substance: VENLAFAXINE HYDROCHLORIDE
  2. METHOTREXATE [Concomitant]
     Active Substance: METHOTREXATE
     Dosage: LOW DOSE - .2
     Route: 065
  3. VITAMIN B3 [Concomitant]
     Active Substance: NIACIN
  4. MSM [Concomitant]
  5. FOLIC ACID. [Concomitant]
     Active Substance: FOLIC ACID
  6. TRAZODONE [Concomitant]
     Active Substance: TRAZODONE HYDROCHLORIDE
  7. OMEGA FISH OIL [Concomitant]
     Active Substance: FISH OIL\OMEGA-3 FATTY ACIDS
  8. VITAMIN B12 [Concomitant]
     Active Substance: CYANOCOBALAMIN
  9. RITUXAN [Suspect]
     Active Substance: RITUXIMAB
     Indication: RHEUMATOID ARTHRITIS
     Dosage: FREQUENCY : DAY 1 AND DAY 15.?DATE OF PREVIOUS DOSE : 24/MAY/2013.
     Route: 042
     Dates: start: 20130509
  10. METHYLPREDNISOLONE [Concomitant]
     Active Substance: METHYLPREDNISOLONE
     Indication: PREMEDICATION
     Route: 042
     Dates: start: 20130509
  11. ZOPICLONE [Concomitant]
     Active Substance: ZOPICLONE
  12. ESTRACE [Concomitant]
     Active Substance: ESTRADIOL
     Dosage: LOWER DOSE
     Route: 065
  13. ACETAMINOPHEN. [Concomitant]
     Active Substance: ACETAMINOPHEN
     Indication: PREMEDICATION
     Route: 048
     Dates: start: 20130509
  14. ATIVAN [Concomitant]
     Active Substance: LORAZEPAM
     Route: 065
  15. VITAMIN B5 [Concomitant]

REACTIONS (7)
  - Haematoma [Unknown]
  - Osteosclerosis [Unknown]
  - Genital disorder female [Unknown]
  - Weight increased [Unknown]
  - Blood pressure increased [Unknown]
  - Rheumatoid arthritis [Unknown]
  - Fall [Unknown]

NARRATIVE: CASE EVENT DATE: 20140213
